FAERS Safety Report 7951295-9 (Version None)
Quarter: 2011Q4

REPORT INFORMATION
  Report Type: 
  Country: None (occurrence: None)
  Receive Date: 20111129
  Receipt Date: 20111115
  Transmission Date: 20120403
  Serious: Yes (Other)
  Sender: FDA-Public Use
  Company Number: 2011SP053770

PATIENT
  Age: 78 Year
  Sex: Female
  Weight: 43 kg

DRUGS (9)
  1. DOXAZOSIN MESYLATE [Concomitant]
  2. ASPARA K [Concomitant]
  3. VALPROATE SODIUM [Concomitant]
  4. BASEN OD [Concomitant]
  5. AMLODIN OD [Concomitant]
  6. WARFARIN SODIUM [Suspect]
     Indication: DEEP VEIN THROMBOSIS
     Dosage: 2.5 MG; PO
     Route: 048
     Dates: start: 20110419
  7. TEMODAL [Suspect]
     Indication: GLIOBLASTOMA MULTIFORME
     Dosage: 120 MG;QD;PO 150 MG/M2;QD; PO 100 MG/M2;QD;PO
     Route: 048
     Dates: start: 20110801, end: 20110901
  8. TEMODAL [Suspect]
     Indication: GLIOBLASTOMA MULTIFORME
     Dosage: 120 MG;QD;PO 150 MG/M2;QD; PO 100 MG/M2;QD;PO
     Route: 048
     Dates: start: 20110510, end: 20110620
  9. TEMODAL [Suspect]
     Indication: GLIOBLASTOMA MULTIFORME
     Dosage: 120 MG;QD;PO 150 MG/M2;QD; PO 100 MG/M2;QD;PO
     Route: 048
     Dates: start: 20110901, end: 20111001

REACTIONS (1)
  - MYOCARDIAL INFARCTION [None]
